FAERS Safety Report 11356731 (Version 1)
Quarter: 2015Q3

REPORT INFORMATION
  Report Type: Spontaneous
  Country: US (occurrence: US)
  Receive Date: 20150803
  Receipt Date: 20150803
  Transmission Date: 20151125
  Serious: Yes (Hospitalization)
  Sender: FDA-Public Use
  Company Number: US-ELI_LILLY_AND_COMPANY-US201208009442

PATIENT
  Age: 9 Year
  Sex: Male
  Weight: 22.68 kg

DRUGS (10)
  1. STRATTERA [Suspect]
     Active Substance: ATOMOXETINE HYDROCHLORIDE
     Indication: ATTENTION DEFICIT/HYPERACTIVITY DISORDER
     Dosage: 18 MG, UNKNOWN
     Dates: start: 201108
  2. STRATTERA [Suspect]
     Active Substance: ATOMOXETINE HYDROCHLORIDE
     Dosage: 35 MG (10MG + 25MG), UNK
     Dates: start: 201108
  3. OMEGA 3 [Concomitant]
     Active Substance: OMEGA-3 FATTY ACIDS
  4. STRATTERA [Suspect]
     Active Substance: ATOMOXETINE HYDROCHLORIDE
     Dosage: 25 MG, UNK
     Dates: start: 201108
  5. CLONIDINE. [Concomitant]
     Active Substance: CLONIDINE
  6. MELATONIN [Concomitant]
     Active Substance: MELATONIN
  7. PEDIASURE [Concomitant]
     Active Substance: VITAMINS
  8. STRATTERA [Suspect]
     Active Substance: ATOMOXETINE HYDROCHLORIDE
     Dosage: 25 MG, UNK
     Dates: start: 20120828
  9. CONCERTA [Concomitant]
     Active Substance: METHYLPHENIDATE HYDROCHLORIDE
  10. PROBIOTICS [Concomitant]
     Active Substance: PROBIOTICS NOS

REACTIONS (10)
  - Mood altered [Unknown]
  - Asperger^s disorder [Unknown]
  - Fatigue [Unknown]
  - Aggression [Unknown]
  - Decreased appetite [Unknown]
  - Fear [Unknown]
  - Somnolence [Unknown]
  - Crying [Unknown]
  - Drug ineffective [Unknown]
  - Nasal congestion [Unknown]

NARRATIVE: CASE EVENT DATE: 201108
